FAERS Safety Report 25150309 (Version 2)
Quarter: 2025Q3

REPORT INFORMATION
  Report Type: Report from Study
  Country: US (occurrence: US)
  Receive Date: 20250402
  Receipt Date: 20250729
  Transmission Date: 20251020
  Serious: Yes (Hospitalization)
  Sender: OTSUKA
  Company Number: US-MMM-Otsuka-ZOIQBEXC

PATIENT
  Sex: Male

DRUGS (2)
  1. TOLVAPTAN [Suspect]
     Active Substance: TOLVAPTAN
     Indication: Congenital cystic kidney disease
     Route: 065
     Dates: start: 20231103, end: 2025
  2. TOLVAPTAN [Suspect]
     Active Substance: TOLVAPTAN
     Route: 065
     Dates: start: 2025

REACTIONS (13)
  - Immune thrombocytopenia [Recovered/Resolved]
  - Blood parathyroid hormone increased [Unknown]
  - Red blood cell count increased [Recovered/Resolved]
  - Haematocrit increased [Recovered/Resolved]
  - Mean cell haemoglobin concentration decreased [Unknown]
  - Blood magnesium increased [Unknown]
  - Platelet count increased [Unknown]
  - Low density lipoprotein increased [Unknown]
  - Blood osmolarity increased [Unknown]
  - Glomerular filtration rate decreased [Recovering/Resolving]
  - Blood urea increased [Not Recovered/Not Resolved]
  - Blood creatinine increased [Recovering/Resolving]
  - Transaminases increased [Recovered/Resolved]

NARRATIVE: CASE EVENT DATE: 20250101
